FAERS Safety Report 17973720 (Version 1)
Quarter: 2020Q3

REPORT INFORMATION
  Report Type: Spontaneous
  Country: FR (occurrence: FR)
  Receive Date: 20200702
  Receipt Date: 20200702
  Transmission Date: 20201103
  Serious: Yes (Other)
  Sender: FDA-Public Use
  Company Number: FR-ENDO PHARMACEUTICALS INC-2020-004544

PATIENT
  Age: 24 Year
  Sex: Male

DRUGS (1)
  1. CLOMIPHENE CITRATE. [Suspect]
     Active Substance: CLOMIPHENE CITRATE
     Indication: PERFORMANCE ENHANCING PRODUCT USE
     Dosage: 50 MG, UNKNOWN
     Route: 065
     Dates: start: 2019

REACTIONS (2)
  - Sinus tachycardia [Recovered/Resolved]
  - Intentional product misuse [Unknown]

NARRATIVE: CASE EVENT DATE: 2019
